FAERS Safety Report 7973520-0 (Version None)
Quarter: 2011Q4

REPORT INFORMATION
  Report Type: 
  Country: None (occurrence: None)
  Receive Date: 20111201
  Receipt Date: 20111116
  Transmission Date: 20120403
  Serious: Yes (Life-Threatening)
  Sender: FDA-Public Use
  Company Number: CY-1189054

PATIENT
  Age: 78 Year
  Sex: Female
  Weight: 85 kg

DRUGS (1)
  1. VIGAMOX [Suspect]
     Indication: PREOPERATIVE CARE
     Dosage: (1 GTT OPHTHALMIC)
     Route: 047
     Dates: start: 20111116, end: 20111116

REACTIONS (2)
  - ANAPHYLACTIC SHOCK [None]
  - OFF LABEL USE [None]
